FAERS Safety Report 12227278 (Version 1)
Quarter: 2016Q1

REPORT INFORMATION
  Report Type: Spontaneous
  Country: GB (occurrence: GB)
  Receive Date: 20160331
  Receipt Date: 20160331
  Transmission Date: 20160526
  Serious: Yes (Other)
  Sender: FDA-Public Use
  Company Number: GB-TEVA-647224ACC

PATIENT
  Age: 75 Year
  Sex: Female
  Weight: 82 kg

DRUGS (13)
  1. CLOPIDOGREL [Concomitant]
     Active Substance: CLOPIDOGREL BISULFATE
     Dosage: 1 DOSAGE FORMS DAILY;
     Dates: start: 20150302
  2. NITROFURANTOIN. [Concomitant]
     Active Substance: NITROFURANTOIN
     Indication: ANTIBIOTIC THERAPY
     Dosage: 4 DOSAGE FORMS DAILY;
     Dates: start: 20160208, end: 20160215
  3. FOLIC ACID. [Concomitant]
     Active Substance: FOLIC ACID
     Dosage: 1 DOSAGE FORMS DAILY;
     Dates: start: 20160311
  4. FUSIDIC ACID [Concomitant]
     Active Substance: FUSIDIC ACID
     Dosage: 3 DOSAGE FORMS DAILY; APPLY TO THE AFFECTED AREA
     Dates: start: 20151229, end: 20160105
  5. TRIMETHOPRIM. [Concomitant]
     Active Substance: TRIMETHOPRIM
     Dosage: 1 DOSAGE FORMS DAILY; NOCTE
     Dates: start: 20160302
  6. PAROXETINE [Suspect]
     Active Substance: PAROXETINE\PAROXETINE HYDROCHLORIDE
     Dates: start: 20150302
  7. SIMVASTATIN. [Concomitant]
     Active Substance: SIMVASTATIN
     Dosage: 1 DOSAGE FORMS DAILY;
     Dates: start: 20150302
  8. SUDOCREM [Concomitant]
     Indication: RASH
     Dates: start: 20150824
  9. FLUCLOXACILLIN [Concomitant]
     Active Substance: FLUCLOXACILLIN
     Indication: ANTIBIOTIC THERAPY
     Dosage: 4 DOSAGE FORMS DAILY;
     Dates: start: 20151229, end: 20160105
  10. LAXIDO [Concomitant]
     Active Substance: POLYETHYLENE GLYCOL 3350\POTASSIUM CHLORIDE\SODIUM BICARBONATE\SODIUM CHLORIDE
     Dosage: TAKE ONE ONCE OR TWICE A DAY AS REQUIRED, OR AS...
     Dates: start: 20150602
  11. BUMETANIDE. [Concomitant]
     Active Substance: BUMETANIDE
     Dosage: 1 DOSAGE FORMS DAILY;
     Dates: start: 20150302
  12. CYANOCOBALAMIN. [Concomitant]
     Active Substance: CYANOCOBALAMIN
     Dosage: 1 DOSAGE FORMS DAILY;
     Dates: start: 20160311
  13. PARACETAMOL [Concomitant]
     Active Substance: ACETAMINOPHEN
     Dosage: 1-2 TABS UPTO 4 TIMES A DAY AS NEEDED
     Dates: start: 20150302

REACTIONS (1)
  - Vasculitic rash [Recovering/Resolving]

NARRATIVE: CASE EVENT DATE: 20160315
